FAERS Safety Report 6460433-9 (Version None)
Quarter: 2009Q4

REPORT INFORMATION
  Report Type: 
  Country: None (occurrence: None)
  Receive Date: 20091130
  Receipt Date: 20091117
  Transmission Date: 20100525
  Serious: Yes (Other)
  Sender: FDA-Public Use
  Company Number: CA-ROCHE-668721

PATIENT
  Sex: Female
  Weight: 65 kg

DRUGS (7)
  1. PEG-INTERFERON ALFA 2A (RO 25-8310) [Suspect]
     Dosage: DOSE PER PROTOCOL; FORM: VIAL; TEMPORARILY INTERRUPTED
     Route: 058
     Dates: start: 20090914, end: 20091111
  2. RO 5190591 (ITMN-191) [Suspect]
     Dosage: DOSE BLINDED; FREQUENCY: EVERY 12 HOURS; LAST DOSE PRIOR TO SAE ON 11NOV2009;TEMPORARILY INTERRUPTED
     Route: 048
     Dates: start: 20090914, end: 20091111
  3. RIBAVIRIN [Suspect]
     Dosage: LAST DOSE PRIOR TO SAE ON 11 NOV 2009; TEMPORARILY INTERRUPTED
     Route: 048
     Dates: start: 20090914, end: 20091111
  4. METOPROLOL [Concomitant]
     Dates: start: 20050101
  5. HYDROCHLOROTHIAZIDE [Concomitant]
     Dates: start: 20050101
  6. SYNTHROID [Concomitant]
     Dates: start: 20090826
  7. ALLOPURINOL [Concomitant]
     Dates: start: 20091002, end: 20091112

REACTIONS (1)
  - ALANINE AMINOTRANSFERASE INCREASED [None]
